FAERS Safety Report 7515011-7 (Version None)
Quarter: 2011Q2

REPORT INFORMATION
  Report Type: 
  Country: None (occurrence: None)
  Receive Date: 20110601
  Receipt Date: 20110518
  Transmission Date: 20111010
  Serious: Yes (Other)
  Sender: FDA-Public Use
  Company Number: PHHY2011US43332

PATIENT
  Sex: Female

DRUGS (2)
  1. CALCIUM CARBONATE [Concomitant]
  2. RECLAST [Suspect]
     Dosage: UNK
     Route: 042
     Dates: start: 20110517

REACTIONS (11)
  - BACK PAIN [None]
  - DYSPNOEA [None]
  - INFLUENZA LIKE ILLNESS [None]
  - PAIN [None]
  - ARTHRALGIA [None]
  - PANIC ATTACK [None]
  - BRONCHITIS [None]
  - HEADACHE [None]
  - BONE PAIN [None]
  - INSOMNIA [None]
  - MUSCULOSKELETAL CHEST PAIN [None]
